FAERS Safety Report 8431827-7 (Version None)
Quarter: 2012Q2

REPORT INFORMATION
  Report Type: 
  Country: None (occurrence: None)
  Receive Date: 20120613
  Receipt Date: 20120612
  Transmission Date: 20120825
  Serious: Yes (Death)
  Sender: FDA-Public Use
  Company Number: US-PFIZER INC-2011002747

PATIENT
  Age: 64 Year
  Sex: Male

DRUGS (3)
  1. TOPIRAMATE [Suspect]
  2. DIAZEPAM [Suspect]
  3. VERAPAMIL HCL [Suspect]

REACTIONS (1)
  - COMPLETED SUICIDE [None]
